FAERS Safety Report 7694491-0 (Version None)
Quarter: 2011Q3

REPORT INFORMATION
  Report Type: 
  Country: None (occurrence: None)
  Receive Date: 20110819
  Receipt Date: 20110809
  Transmission Date: 20111222
  Serious: Yes (Other)
  Sender: FDA-Public Use
  Company Number: PHHY2011JP72798

PATIENT
  Sex: Female

DRUGS (24)
  1. CLOZAPINE [Suspect]
     Dosage: 150 MG
     Route: 048
     Dates: start: 20101210
  2. CLOZAPINE [Suspect]
     Dosage: 225 MG
     Route: 048
     Dates: start: 20101213
  3. CLOZAPINE [Suspect]
     Dosage: 400 MG
     Route: 048
     Dates: start: 20110105, end: 20110111
  4. CLOZAPINE [Suspect]
     Dosage: 500 MG
     Route: 048
     Dates: start: 20110112
  5. LULLAN [Concomitant]
     Route: 048
  6. SEROQUEL [Concomitant]
     Route: 048
  7. CLOZAPINE [Suspect]
     Dosage: 50 MG
     Route: 048
     Dates: start: 20101206
  8. CLOZAPINE [Suspect]
     Dosage: 75 MG
     Route: 048
     Dates: start: 20101207
  9. CLOZAPINE [Suspect]
     Dosage: 275 MG
     Route: 048
     Dates: start: 20101215
  10. CLOZAPINE [Suspect]
     Dosage: 300 MG
     Route: 048
     Dates: start: 20101216
  11. RISPERDAL [Concomitant]
     Route: 048
  12. CLOZAPINE [Suspect]
     Dosage: 25 MG
     Route: 048
     Dates: start: 20101205
  13. CLOZAPINE [Suspect]
     Dosage: 100 MG
     Dates: start: 20101208
  14. CLOZAPINE [Suspect]
     Dosage: 200 MG
     Route: 048
     Dates: start: 20101212
  15. CLOZAPINE [Suspect]
     Indication: SCHIZOPHRENIA, PARANOID TYPE
     Dosage: 12.5 MG
     Route: 048
     Dates: start: 20101204
  16. LENDORMIN [Concomitant]
     Dosage: 0.5 MG
     Route: 048
     Dates: start: 20090423
  17. BLONANSERIN [Concomitant]
     Route: 048
  18. CLOZAPINE [Suspect]
     Dosage: 125 MG, UNK
     Route: 048
     Dates: start: 20101209
  19. CLOZAPINE [Suspect]
     Dosage: 175 MG
     Route: 048
     Dates: start: 20101211
  20. ROHYPNOL [Concomitant]
     Dosage: 2 MG
     Route: 048
     Dates: start: 20081105
  21. ABILIFY [Concomitant]
     Route: 048
  22. CLOZAPINE [Suspect]
     Dosage: 250 MG
     Route: 048
     Dates: start: 20101214
  23. ZOLPIDEM [Concomitant]
     Indication: SCHIZOPHRENIA, PARANOID TYPE
     Dosage: 10 MG
     Route: 048
     Dates: start: 20080709
  24. ZYPREXA [Concomitant]
     Route: 048

REACTIONS (10)
  - FALL [None]
  - MONOCYTE COUNT DECREASED [None]
  - SYNCOPE [None]
  - CONVULSION [None]
  - EOSINOPHIL COUNT INCREASED [None]
  - TREMOR [None]
  - LYMPHOCYTE COUNT DECREASED [None]
  - EOSINOPHIL COUNT DECREASED [None]
  - CONSTIPATION [None]
  - LOSS OF CONSCIOUSNESS [None]
